FAERS Safety Report 21724085 (Version 3)
Quarter: 2022Q4

REPORT INFORMATION
  Report Type: Report from Study
  Country: KR (occurrence: KR)
  Receive Date: 20221213
  Receipt Date: 20221220
  Transmission Date: 20230113
  Serious: Yes (Hospitalization)
  Sender: FDA-Public Use
  Company Number: KR-BAYER-2022A170112

PATIENT
  Age: 38 Year
  Sex: Female
  Weight: 50.55 kg

DRUGS (4)
  1. REGORAFENIB [Suspect]
     Active Substance: REGORAFENIB
     Indication: Hepatocellular carcinoma
     Dosage: 160 MG
     Route: 048
     Dates: start: 20220727, end: 202208
  2. REGORAFENIB [Suspect]
     Active Substance: REGORAFENIB
     Indication: Hepatocellular carcinoma
     Dosage: 120 MG
     Route: 048
     Dates: start: 202208, end: 20221130
  3. VIRIVA [Concomitant]
     Indication: Hepatitis B
     Dosage: 300 MG, QD
     Route: 048
     Dates: start: 202003
  4. URSODIOL [Concomitant]
     Active Substance: URSODIOL
     Indication: Hepatobiliary disorder prophylaxis
     Dosage: 100 MG, TID
     Route: 048
     Dates: start: 20211022

REACTIONS (1)
  - Colitis [Recovered/Resolved]

NARRATIVE: CASE EVENT DATE: 20221123
